FAERS Safety Report 4449630-1 (Version None)
Quarter: 2004Q3

REPORT INFORMATION
  Report Type: 
  Country: None (occurrence: None)
  Receive Date: 20040913
  Receipt Date: 20040827
  Transmission Date: 20050211
  Serious: Yes (Hospitalization, Other)
  Sender: FDA-Public Use
  Company Number: 701357

PATIENT
  Age: 55 Year
  Sex: Male

DRUGS (8)
  1. AMEVIVE [Suspect]
     Indication: PSORIASIS
     Dosage: 15 MG QW IM
     Route: 030
     Dates: start: 20030926, end: 20031215
  2. WELLBUTRIN [Concomitant]
  3. LIPITOR [Concomitant]
  4. PRILOSEC [Concomitant]
  5. TRILEPTAL [Concomitant]
  6. TRAZODONE HCL [Concomitant]
  7. LITHOBID [Concomitant]
  8. NIASPAN [Concomitant]

REACTIONS (4)
  - DISEASE RECURRENCE [None]
  - HERPES ZOSTER MULTI-DERMATOMAL [None]
  - POST HERPETIC NEURALGIA [None]
  - VARICELLA [None]
